FAERS Safety Report 5675785-7 (Version None)
Quarter: 2008Q1

REPORT INFORMATION
  Report Type: 
  Country: None (occurrence: None)
  Receive Date: 20080321
  Receipt Date: 20080317
  Transmission Date: 20080703
  Serious: Yes (Other)
  Sender: FDA-Public Use
  Company Number: DE-BRISTOL-MYERS SQUIBB COMPANY-14034607

PATIENT
  Age: 50 Year
  Sex: Female
  Weight: 52 kg

DRUGS (6)
  1. REYATAZ [Suspect]
     Indication: HIV INFECTION
     Route: 048
     Dates: start: 20071004, end: 20071026
  2. TRUVADA [Concomitant]
     Indication: HIV INFECTION
     Dosage: DOSAGE FORM = TABLET
     Route: 048
     Dates: start: 20071004, end: 20080301
  3. NORVIR [Concomitant]
     Indication: HIV INFECTION
     Route: 048
     Dates: start: 20070601
  4. CIPRALEX [Concomitant]
     Route: 048
  5. QUILONUM [Concomitant]
     Indication: CYCLOTHYMIC DISORDER
     Dosage: 1 DOSAGE FORM = 1 1/2 TABLET
     Route: 048
  6. ZYPREXA [Concomitant]
     Indication: CYCLOTHYMIC DISORDER
     Dosage: FORMULATION = 10 VELOTABS
     Route: 048
     Dates: start: 20070601

REACTIONS (1)
  - ELECTROCARDIOGRAM QT PROLONGED [None]
